FAERS Safety Report 5278389-3 (Version None)
Quarter: 2007Q1

REPORT INFORMATION
  Report Type: 
  Country: None (occurrence: None)
  Receive Date: 20061213
  Receipt Date: 20050714
  Transmission Date: 20070707
  Serious: No
  Sender: FDA-Public Use
  Company Number: 2005UW10533

PATIENT
  Age: 9 Year
  Sex: Male
  Weight: 38.101 kg

DRUGS (3)
  1. SEROQUEL [Suspect]
     Indication: ABNORMAL BEHAVIOUR
     Dosage: 450 MG QD PO
     Route: 048
     Dates: start: 20050101
  2. ZOLOFT [Concomitant]
  3. PROPRANOLOL [Concomitant]

REACTIONS (2)
  - DEAFNESS NEUROSENSORY [None]
  - WEIGHT INCREASED [None]
